FAERS Safety Report 7987036-9 (Version None)
Quarter: 2011Q4

REPORT INFORMATION
  Report Type: 
  Country: None (occurrence: None)
  Receive Date: 20111216
  Receipt Date: 20110926
  Transmission Date: 20120403
  Serious: No
  Sender: FDA-Public Use
  Company Number: US-BRISTOL-MYERS SQUIBB COMPANY-16071136

PATIENT
  Age: 15 Year
  Sex: Female
  Weight: 93 kg

DRUGS (2)
  1. ARIPIPRAZOLE [Suspect]
     Indication: AFFECTIVE DISORDER
     Dosage: THE MAXIMUM DOSE OF ARIPIPRAZOLE RECEIVED BY THE PATIENT WAS 20 MG
     Dates: start: 20090101, end: 20110601
  2. GUANFACINE HYDROCHLORIDE [Concomitant]
     Indication: IMPULSIVE BEHAVIOUR

REACTIONS (6)
  - AMENORRHOEA [None]
  - WEIGHT INCREASED [None]
  - GLUCOSE TOLERANCE IMPAIRED [None]
  - ACANTHOSIS NIGRICANS [None]
  - SNORING [None]
  - SOMNOLENCE [None]
